FAERS Safety Report 11390767 (Version 2)
Quarter: 2015Q4

REPORT INFORMATION
  Report Type: Spontaneous
  Country: GB (occurrence: GB)
  Receive Date: 20150818
  Receipt Date: 20151005
  Transmission Date: 20160304
  Serious: Yes (Other)
  Sender: FDA-Public Use
  Company Number: PHFR2014GB004068

PATIENT
  Age: 28 Year
  Sex: Male
  Weight: 83 kg

DRUGS (2)
  1. CLOZARIL [Suspect]
     Active Substance: CLOZAPINE
     Dosage: DOSE INCREASED BY 25 MG
     Route: 065
  2. CLOZARIL [Suspect]
     Active Substance: CLOZAPINE
     Indication: SCHIZOPHRENIA
     Dosage: 450 MG, QD, DAILY (150 MG MORNING AND 300 MG NIGHT)
     Route: 048
     Dates: start: 20140120

REACTIONS (7)
  - Blood pressure decreased [Recovered/Resolved]
  - Tachycardia [Recovered/Resolved]
  - Antipsychotic drug level below therapeutic [Unknown]
  - Electrocardiogram QT shortened [Recovered/Resolved]
  - Electrocardiogram T wave abnormal [Recovered/Resolved]
  - Body temperature fluctuation [Recovered/Resolved]
  - Blood pressure increased [Unknown]

NARRATIVE: CASE EVENT DATE: 20140122
